FAERS Safety Report 11087216 (Version 11)
Quarter: 2019Q3

REPORT INFORMATION
  Report Type: Spontaneous
  Country: US (occurrence: US)
  Receive Date: 20150504
  Receipt Date: 20190920
  Transmission Date: 20191004
  Serious: Yes (Other)
  Sender: FDA-Public Use
  Company Number: US-PFIZER INC-2015151747

PATIENT
  Age: 54 Year
  Sex: Female

DRUGS (3)
  1. NEURONTIN [Concomitant]
     Active Substance: GABAPENTIN
     Dosage: UNK
  2. LYRICA [Suspect]
     Active Substance: PREGABALIN
     Indication: FIBROMYALGIA
     Dosage: 200 MG, 1X/DAY
     Route: 048
     Dates: start: 2007
  3. LYRICA [Suspect]
     Active Substance: PREGABALIN
     Dosage: 300 MG, DAILY
     Route: 048

REACTIONS (6)
  - Dysphonia [Unknown]
  - Chronic obstructive pulmonary disease [Unknown]
  - Psoriatic arthropathy [Unknown]
  - Pain [Unknown]
  - Malaise [Unknown]
  - Foot fracture [Unknown]
